FAERS Safety Report 6933423-7 (Version None)
Quarter: 2010Q3

REPORT INFORMATION
  Report Type: 
  Country: None (occurrence: None)
  Receive Date: 20100820
  Receipt Date: 20100809
  Transmission Date: 20110219
  Serious: Yes (Hospitalization, Other)
  Sender: FDA-Public Use
  Company Number: US-ELI_LILLY_AND_COMPANY-US201001000988

PATIENT
  Sex: Female

DRUGS (3)
  1. FORTEO [Suspect]
     Indication: OSTEOPOROSIS
     Dosage: 20 UG, DAILY (1/D)
     Dates: start: 20090901
  2. OXYGEN [Concomitant]
     Indication: DYSPNOEA
     Dosage: 2 LITER, UNK
  3. OXYGEN [Concomitant]
     Dosage: 2.5 LITER, UNK

REACTIONS (5)
  - CHRONIC OBSTRUCTIVE PULMONARY DISEASE [None]
  - DRUG DOSE OMISSION [None]
  - DYSPNOEA [None]
  - MEMORY IMPAIRMENT [None]
  - RESPIRATORY TRACT INFECTION [None]
